FAERS Safety Report 23339713 (Version 2)
Quarter: 2024Q1

REPORT INFORMATION
  Report Type: Spontaneous
  Country: CN (occurrence: None)
  Receive Date: 20231226
  Receipt Date: 20240117
  Transmission Date: 20240410
  Serious: Yes (Hospitalization)
  Sender: FDA-Public Use
  Company Number: 2023A291420

PATIENT

DRUGS (1)
  1. SYMBICORT [Suspect]
     Active Substance: BUDESONIDE\FORMOTEROL FUMARATE DIHYDRATE
     Dosage: 160?G/4.5?G/INHALATION, 60INHALATIONS/VIAL, ONE VIAL/BOX UNKNOWN
     Route: 055

REACTIONS (2)
  - Dyspnoea [Unknown]
  - Device delivery system issue [Unknown]
